FAERS Safety Report 5857358-6 (Version None)
Quarter: 2008Q3

REPORT INFORMATION
  Report Type: 
  Country: None (occurrence: None)
  Receive Date: 20080821
  Receipt Date: 20080821
  Transmission Date: 20090109
  Serious: Yes (Other)
  Sender: FDA-Public Use
  Company Number: None

PATIENT
  Age: 43 Year
  Sex: Female

DRUGS (2)
  1. WELLBUTRIN XL [Suspect]
     Indication: DEPRESSION
     Dosage: TAKE 1 TABLET TWICE A DAY
  2. WELLBUTRIN XL [Suspect]

REACTIONS (2)
  - MEDICATION RESIDUE [None]
  - NO THERAPEUTIC RESPONSE [None]
